FAERS Safety Report 5510277-7 (Version None)
Quarter: 2007Q4

REPORT INFORMATION
  Report Type: 
  Country: None (occurrence: None)
  Receive Date: 20071108
  Receipt Date: 20071031
  Transmission Date: 20080405
  Serious: Yes (Death)
  Sender: FDA-Public Use
  Company Number: IN-BAXTER-2007BH008666

PATIENT
  Age: 66 Year
  Sex: Male
  Weight: 55 kg

DRUGS (1)
  1. DIANEAL [Suspect]
     Indication: PERITONEAL DIALYSIS
     Route: 033
     Dates: start: 20070901, end: 20071031

REACTIONS (4)
  - DEATH [None]
  - NEUTROPHIL PERCENTAGE INCREASED [None]
  - PERITONITIS [None]
  - PYREXIA [None]
